FAERS Safety Report 12249073 (Version 1)
Quarter: 2016Q2

REPORT INFORMATION
  Report Type: Report from Study
  Country: US (occurrence: US)
  Receive Date: 20160408
  Receipt Date: 20160408
  Transmission Date: 20160815
  Serious: No
  Sender: FDA-Public Use
  Company Number: ADR-2014-01064

PATIENT
  Age: 59 Year
  Sex: Female

DRUGS (4)
  1. DILAUDID [Suspect]
     Active Substance: HYDROMORPHONE HYDROCHLORIDE
     Dosage: 1.3988 MG/DAY
  2. CLONIDINE. [Suspect]
     Active Substance: CLONIDINE
     Dosage: 34.97 MCG/DAY
     Route: 037
  3. BUPIVACAINE. [Suspect]
     Active Substance: BUPIVACAINE
     Dosage: 6.994 MG/DAY
     Route: 037
  4. COMPOUNDED BACLOFEN [Suspect]
     Active Substance: BACLOFEN
     Dosage: 139.88 MCG/DAY
     Route: 037

REACTIONS (1)
  - Oedema peripheral [Recovered/Resolved]
